FAERS Safety Report 14892908 (Version 1)
Quarter: 2018Q2

REPORT INFORMATION
  Report Type: Spontaneous
  Country: US (occurrence: US)
  Receive Date: 20180509
  Receipt Date: 20180509
  Transmission Date: 20180711
  Serious: Yes (Other)
  Sender: FDA-Public Use
  Company Number: None

PATIENT
  Age: 45 Year
  Sex: Male
  Weight: 89.4 kg

DRUGS (6)
  1. CEFEPIME [Suspect]
     Active Substance: CEFEPIME HYDROCHLORIDE
     Indication: OSTEOMYELITIS
     Route: 042
     Dates: start: 20180212, end: 20180302
  2. WARFARIN [Concomitant]
     Active Substance: WARFARIN
  3. PREDNISONE. [Concomitant]
     Active Substance: PREDNISONE
  4. VANCOMYCIN [Concomitant]
     Active Substance: VANCOMYCIN
  5. CYCLOBENZAPRINE. [Concomitant]
     Active Substance: CYCLOBENZAPRINE
  6. LEVETIRACETAM. [Concomitant]
     Active Substance: LEVETIRACETAM

REACTIONS (2)
  - Acute kidney injury [None]
  - Neutropenia [None]

NARRATIVE: CASE EVENT DATE: 20180226
